FAERS Safety Report 10521071 (Version 10)
Quarter: 2015Q1

REPORT INFORMATION
  Report Type: Spontaneous
  Country: US (occurrence: US)
  Receive Date: 20141016
  Receipt Date: 20150218
  Transmission Date: 20150720
  Serious: Yes (Hospitalization)
  Sender: FDA-Public Use
  Company Number: US-UNITED THERAPEUTICS-UNT-2014-009162

PATIENT
  Age: 70 Year
  Sex: Female
  Weight: 62.59 kg

DRUGS (8)
  1. REMODULIN [Suspect]
     Active Substance: TREPROSTINIL
     Dosage: 0.090 ?G/KG, CONTINUING
     Route: 058
     Dates: start: 20141015
  2. REMODULIN [Suspect]
     Active Substance: TREPROSTINIL
     Indication: PULMONARY HYPERTENSION
     Dosage: 0.050 ?G/KG, CONTINUING
     Route: 058
     Dates: start: 20140319
  3. REMODULIN [Suspect]
     Active Substance: TREPROSTINIL
     Indication: COR PULMONALE CHRONIC
     Dosage: 0.079 ?G/KG, CONTINUING
     Route: 058
     Dates: start: 20140318
  4. ADCIRCA [Concomitant]
     Active Substance: TADALAFIL
     Indication: PRODUCT USED FOR UNKNOWN INDICATION
  5. REMODULIN [Suspect]
     Active Substance: TREPROSTINIL
     Dosage: 0.0923 ?G/KG CONTINUING
     Route: 041
     Dates: start: 20141015
  6. REMODULIN [Suspect]
     Active Substance: TREPROSTINIL
     Dosage: 0.0903 ?G/KG CONTINUING
     Route: 041
     Dates: start: 20141015
  7. TRACLEER [Concomitant]
     Active Substance: BOSENTAN\BOSENTAN MONOHYDRATE
     Indication: PRODUCT USED FOR UNKNOWN INDICATION
  8. VENTAVIS [Concomitant]
     Active Substance: ILOPROST
     Indication: PRODUCT USED FOR UNKNOWN INDICATION

REACTIONS (13)
  - Cardiac failure [Not Recovered/Not Resolved]
  - Feeling cold [Recovered/Resolved]
  - Dyspnoea exertional [Unknown]
  - Dyspnoea [Not Recovered/Not Resolved]
  - Infusion site pain [Recovered/Resolved]
  - Nausea [Unknown]
  - Discomfort [Unknown]
  - Pain in jaw [Recovered/Resolved]
  - Musculoskeletal stiffness [Recovered/Resolved]
  - Pulmonary arterial hypertension [Not Recovered/Not Resolved]
  - Fatigue [Not Recovered/Not Resolved]
  - Diarrhoea [Unknown]
  - Dysphonia [Recovered/Resolved]

NARRATIVE: CASE EVENT DATE: 201410
